FAERS Safety Report 8169582-0 (Version None)
Quarter: 2012Q1

REPORT INFORMATION
  Report Type: 
  Country: None (occurrence: None)
  Receive Date: 20120104
  Receipt Date: 20111129
  Transmission Date: 20120608
  Serious: No
  Sender: FDA-Public Use
  Company Number: 2011HGS-002871

PATIENT
  Age: 59 Year
  Sex: Female
  Weight: 69.8539 kg

DRUGS (8)
  1. HYDROCHLOROTHIAZIDE [Concomitant]
  2. BENLYSTA [Suspect]
     Indication: SYSTEMIC LUPUS ERYTHEMATOSUS
     Dosage: 1 IN 28 D, INTRAVENOUS DRIP
     Route: 041
     Dates: start: 20111012
  3. PLAQUENIL [Concomitant]
  4. SYNTHROID [Concomitant]
  5. DIGOXIN [Concomitant]
  6. ATENOLOL [Concomitant]
  7. CELEXA [Concomitant]
  8. METHOTREXATE [Concomitant]

REACTIONS (5)
  - SKIN LESION [None]
  - PARAESTHESIA [None]
  - OEDEMA PERIPHERAL [None]
  - PRURITUS [None]
  - MUSCULOSKELETAL STIFFNESS [None]
